FAERS Safety Report 8919356 (Version 1)
Quarter: 2012Q4

REPORT INFORMATION
  Report Type: Spontaneous
  Country: JP (occurrence: None)
  Receive Date: 20121114
  Receipt Date: 20121114
  Transmission Date: 20130627
  Serious: Yes (Other)
  Sender: FDA-Public Use
  Company Number: CIP-2012-00431

PATIENT
  Age: 54 Year
  Sex: Male

DRUGS (1)
  1. EPIRUBICIN (EPIRUBICIN) (EPIRUBICIN) [Suspect]
     Indication: CARCINOMA HEPATOCELLULAR
     Dosage: dissolved in 5 ml of 5.8% glucose solution,transcatheter arterial infusion

REACTIONS (1)
  - Tumour necrosis [None]
